FAERS Safety Report 7040087-3 (Version None)
Quarter: 2010Q4

REPORT INFORMATION
  Report Type: 
  Country: None (occurrence: None)
  Receive Date: 20101012
  Receipt Date: 20100930
  Transmission Date: 20110411
  Serious: Yes (Other)
  Sender: FDA-Public Use
  Company Number: PHHY2010JP61460

PATIENT
  Sex: Female
  Weight: 55 kg

DRUGS (8)
  1. NEORAL [Suspect]
     Indication: APLASTIC ANAEMIA
     Dosage: 200 MG/DAY
     Route: 048
     Dates: start: 20100331, end: 20100517
  2. APRESOLINE [Concomitant]
     Indication: HYPERTENSION
     Dosage: 30 MG
     Route: 048
     Dates: start: 20100421, end: 20100517
  3. PREDONINE [Concomitant]
     Indication: APLASTIC ANAEMIA
     Dosage: 20 MG
     Route: 048
     Dates: start: 20100303
  4. RINDERON [Concomitant]
     Indication: MATERNAL THERAPY TO ENHANCE FOETAL LUNG MATURITY
     Dosage: 12 MG
     Route: 030
     Dates: start: 20100515, end: 20100516
  5. MAGSENT [Concomitant]
     Indication: HYPERTENSION
     Dosage: UNK
     Route: 042
     Dates: start: 20100504, end: 20100517
  6. OKINAZOLE [Concomitant]
     Indication: VULVOVAGINAL CANDIDIASIS
     Dosage: 600 MG
     Route: 067
     Dates: start: 20100517
  7. AMPICILLIN [Concomitant]
     Indication: CHORIOAMNIONITIS
     Dosage: 2 GM
     Route: 042
     Dates: start: 20100517
  8. ALDOMET [Concomitant]
     Indication: HYPERTENSION
     Dosage: 750 MG
     Dates: start: 20100517

REACTIONS (5)
  - CAESAREAN SECTION [None]
  - DRUG EXPOSURE DURING PREGNANCY [None]
  - DRUG INEFFECTIVE [None]
  - HAEMOGLOBIN DECREASED [None]
  - TRANSFUSION [None]
